FAERS Safety Report 6150601-8 (Version None)
Quarter: 2009Q2

REPORT INFORMATION
  Report Type: 
  Country: None (occurrence: None)
  Receive Date: 20090409
  Receipt Date: 20090331
  Transmission Date: 20091009
  Serious: Yes (Hospitalization)
  Sender: FDA-Public Use
  Company Number: US-BAXTER-2009BH005273

PATIENT
  Age: 60 Year
  Sex: Female

DRUGS (1)
  1. DIANEAL [Suspect]
     Indication: PERITONEAL DIALYSIS
     Route: 033
     Dates: start: 20060214

REACTIONS (4)
  - CONSTIPATION [None]
  - IMPAIRED HEALING [None]
  - PERIPHERAL ARTERIAL OCCLUSIVE DISEASE [None]
  - URINARY RETENTION [None]
